FAERS Safety Report 8988960 (Version 3)
Quarter: 2013Q2

REPORT INFORMATION
  Report Type: Report from Study
  Country: TR (occurrence: TR)
  Receive Date: 20121228
  Receipt Date: 20130408
  Transmission Date: 20140414
  Serious: Yes (Life-Threatening)
  Sender: FDA-Public Use
  Company Number: TR-ROCHE-1174323

PATIENT
  Sex: Female

DRUGS (1)
  1. XELODA [Suspect]
     Indication: BREAST CANCER
     Dosage: DOSE REPORTED AS: 3 PLUS 3, UPDATED TO 3 BY 2
     Route: 048
     Dates: start: 20121122

REACTIONS (1)
  - Tumour marker increased [Not Recovered/Not Resolved]
